FAERS Safety Report 22181252 (Version 1)
Quarter: 2023Q2

REPORT INFORMATION
  Report Type: Report from Study
  Country: AU (occurrence: AU)
  Receive Date: 20230406
  Receipt Date: 20230406
  Transmission Date: 20230722
  Serious: Yes (Hospitalization, Other)
  Sender: FDA-Public Use
  Company Number: AU-VERTEX PHARMACEUTICALS-2022-016457

PATIENT
  Age: 45 Year
  Sex: Male

DRUGS (17)
  1. TRIKAFTA [Suspect]
     Active Substance: ELEXACAFTOR\IVACAFTOR\TEZACAFTOR
     Indication: Cystic fibrosis
     Dosage: 2 TABS AM; 1 TAB PM
     Route: 048
     Dates: start: 20200115
  2. TRIKAFTA [Suspect]
     Active Substance: ELEXACAFTOR\IVACAFTOR\TEZACAFTOR
     Dosage: 2 ORANGE TABS AM; 1 BLUE TAB PM
     Route: 048
  3. LORAZEPAM [Suspect]
     Active Substance: LORAZEPAM
     Indication: Anxiety
     Route: 065
  4. LORAZEPAM [Suspect]
     Active Substance: LORAZEPAM
     Indication: Mental impairment
  5. HUMALOG [Suspect]
     Active Substance: INSULIN LISPRO
     Indication: Product used for unknown indication
     Route: 065
  6. ACTRAPID [Suspect]
     Active Substance: INSULIN HUMAN
     Indication: Product used for unknown indication
     Route: 065
  7. LANTUS [Suspect]
     Active Substance: INSULIN GLARGINE
     Indication: Product used for unknown indication
     Route: 065
  8. ACETYLCYSTEINE [Concomitant]
     Active Substance: ACETYLCYSTEINE
     Route: 055
  9. DORNASE ALFA [Concomitant]
     Active Substance: DORNASE ALFA
     Route: 055
  10. AZITHROMYCIN [Concomitant]
     Active Substance: AZITHROMYCIN
  11. CREON [Concomitant]
     Active Substance: PANCRELIPASE AMYLASE\PANCRELIPASE LIPASE\PANCRELIPASE PROTEASE
     Dosage: 25000
  12. PHYTONADIONE [Concomitant]
     Active Substance: PHYTONADIONE
  13. SODIUM CHLORIDE [Concomitant]
     Active Substance: SODIUM CHLORIDE
  14. URSODIOL [Concomitant]
     Active Substance: URSODIOL
  15. SERETIDE [Concomitant]
     Active Substance: FLUTICASONE PROPIONATE\SALMETEROL XINAFOATE
  16. IPRATROPIUM [Concomitant]
     Active Substance: IPRATROPIUM
  17. INSULIN LISPRO [Concomitant]
     Active Substance: INSULIN LISPRO

REACTIONS (8)
  - Suicidal ideation [Recovered/Resolved]
  - Depressed mood [Unknown]
  - Overdose [Recovered/Resolved]
  - Depression [Unknown]
  - Adjustment disorder [Unknown]
  - Anxiety [Not Recovered/Not Resolved]
  - Mental impairment [Not Recovered/Not Resolved]
  - Malnutrition [Recovering/Resolving]

NARRATIVE: CASE EVENT DATE: 20210601
